FAERS Safety Report 14240658 (Version 1)
Quarter: 2017Q4

REPORT INFORMATION
  Report Type: Spontaneous
  Country: US (occurrence: US)
  Receive Date: 20171130
  Receipt Date: 20171130
  Transmission Date: 20180321
  Serious: Yes (Life-Threatening, Hospitalization)
  Sender: FDA-Public Use
  Company Number: US-ANTARES PHARMA, INC.-2017-SPO-ME-0405

PATIENT
  Age: 18 Year
  Sex: Female
  Weight: 115.19 kg

DRUGS (16)
  1. CYTARABINE. [Suspect]
     Active Substance: CYTARABINE
     Indication: CHEMOTHERAPY
     Dosage: 160 MG, UNK
     Route: 042
     Dates: start: 20170210, end: 20170227
  2. ASPARAGINASE ERWINIA CHRYSANTHEMI [Suspect]
     Active Substance: ASPARAGINASE ERWINIA CHRYSANTHEMI
     Indication: CHEMOTHERAPY
     Dosage: 54000 UNITS, SINGLE
     Route: 030
     Dates: start: 20170310
  3. CYTARABINE. [Suspect]
     Active Substance: CYTARABINE
     Dosage: 170 MG, UNK
     Route: 042
     Dates: start: 20170320
  4. CYCLOPHOSPHAMIDE. [Suspect]
     Active Substance: CYCLOPHOSPHAMIDE
     Dosage: 2240 MG, SINGLE
     Route: 042
     Dates: start: 20170320
  5. ASPARAGINASE ERWINIA CHRYSANTHEMI [Suspect]
     Active Substance: ASPARAGINASE ERWINIA CHRYSANTHEMI
     Dosage: 56000 UNITS, QOD
     Route: 030
     Dates: start: 20170313
  6. PEGASPARGASE [Suspect]
     Active Substance: PEGASPARGASE
     Dosage: 5500 UNITS, SINGLE
     Route: 042
     Dates: start: 20170306
  7. METHOTREXATE. [Suspect]
     Active Substance: METHOTREXATE
     Dosage: 15 MG, QWK
     Route: 037
     Dates: start: 20170210
  8. VINCRISTINE [Suspect]
     Active Substance: VINCRISTINE
     Indication: CHEMOTHERAPY
     Dosage: 2 MG, UNK
     Route: 042
     Dates: start: 20170210, end: 20170227
  9. CYCLOPHOSPHAMIDE. [Suspect]
     Active Substance: CYCLOPHOSPHAMIDE
     Indication: CHEMOTHERAPY
     Dosage: 2200 MG, SINGLE
     Route: 042
     Dates: start: 20170210
  10. PEGASPARGASE [Suspect]
     Active Substance: PEGASPARGASE
     Indication: CHEMOTHERAPY
     Dosage: 2500 UNITS, UNK
     Route: 042
     Dates: start: 20170104, end: 20170306
  11. RUXOLITINIB [Suspect]
     Active Substance: RUXOLITINIB
     Indication: ACUTE LYMPHOCYTIC LEUKAEMIA
     Dosage: 40 MG, UNK
     Route: 048
     Dates: start: 20170210, end: 20170223
  12. MERCAPTOPURINE. [Suspect]
     Active Substance: MERCAPTOPURINE
     Dosage: 125 MG, UNK
     Route: 048
     Dates: start: 20170320
  13. MERCAPTOPURINE. [Suspect]
     Active Substance: MERCAPTOPURINE
     Dosage: 125 MG, UNK
     Route: 048
     Dates: start: 20170210
  14. METHOTREXATE. [Suspect]
     Active Substance: METHOTREXATE
     Indication: CHEMOTHERAPY
     Dosage: 15 MG, SINGLE
     Route: 037
     Dates: start: 20170109
  15. MERCAPTOPURINE. [Suspect]
     Active Substance: MERCAPTOPURINE
     Dosage: 150 MG, UNK
     Route: 048
     Dates: start: 20170320
  16. MERCAPTOPURINE. [Suspect]
     Active Substance: MERCAPTOPURINE
     Indication: CHEMOTHERAPY
     Dosage: 150 MG, UNK
     Route: 048
     Dates: start: 20170210

REACTIONS (3)
  - Anaphylactic reaction [Recovered/Resolved]
  - Febrile neutropenia [Recovered/Resolved]
  - Vascular access complication [Recovering/Resolving]

NARRATIVE: CASE EVENT DATE: 20170307
